FAERS Safety Report 25816919 (Version 1)
Quarter: 2025Q3

REPORT INFORMATION
  Report Type: Spontaneous
  Country: JP (occurrence: JP)
  Receive Date: 20250918
  Receipt Date: 20250918
  Transmission Date: 20251021
  Serious: Yes (Other)
  Sender: MERCK SHARP & DOHME LLC
  Company Number: JP-MSD-2407JPN003400J

PATIENT
  Age: 84 Year
  Sex: Female
  Weight: 30 kg

DRUGS (5)
  1. KEYTRUDA [Suspect]
     Active Substance: PEMBROLIZUMAB
     Indication: Lung adenocarcinoma stage IV
     Route: 065
  2. AMLODIPINE BESYLATE [Concomitant]
     Active Substance: AMLODIPINE BESYLATE
  3. L-aspartate potassium [Concomitant]
  4. edecalcitol [Concomitant]
  5. ACETAMINOPHEN [Concomitant]
     Active Substance: ACETAMINOPHEN

REACTIONS (3)
  - Adult T-cell lymphoma/leukaemia [Unknown]
  - Atypical lymphocytes increased [Recovered/Resolved]
  - Hypercalcaemia [Recovered/Resolved]
